FAERS Safety Report 6732588-X (Version None)
Quarter: 2010Q2

REPORT INFORMATION
  Report Type: 
  Country: None (occurrence: None)
  Receive Date: 20100519
  Receipt Date: 20100506
  Transmission Date: 20101027
  Serious: Yes (Hospitalization, Other)
  Sender: FDA-Public Use
  Company Number: PHHY2010BR29509

PATIENT
  Sex: Female

DRUGS (1)
  1. EXFORGE [Suspect]
     Dosage: UNK

REACTIONS (4)
  - ANAEMIA [None]
  - HYPERPLASTIC CHOLECYSTOPATHY [None]
  - SURGERY [None]
  - SWELLING [None]
